FAERS Safety Report 21916911 (Version 1)
Quarter: 2023Q1

REPORT INFORMATION
  Report Type: Spontaneous
  Country: DE (occurrence: DE)
  Receive Date: 20230126
  Receipt Date: 20230126
  Transmission Date: 20230418
  Serious: Yes (Hospitalization)
  Sender: FDA-Public Use
  Company Number: DE-ADRED-06081-01

PATIENT
  Age: 90 Year
  Sex: Female

DRUGS (7)
  1. APIXABAN [Suspect]
     Active Substance: APIXABAN
     Indication: Product used for unknown indication
     Dosage: 10 MILLIGRAM DAILY; 5 MG, 1-0-1-0, MEDICATION ERRORS
  2. TORSEMIDE [Suspect]
     Active Substance: TORSEMIDE
     Indication: Product used for unknown indication
     Dosage: .5 DOSAGE FORMS DAILY; 10 MG, 0.5-0-0-0, UNIT DOSE : 0.5 DF, FREQUENCY : OD
  3. PANTOPRAZOLE [Concomitant]
     Active Substance: PANTOPRAZOLE
     Indication: Product used for unknown indication
     Dosage: 40 MILLIGRAM DAILY; 40 MG, 1-0-0-0
  4. METOPROLOL [Concomitant]
     Active Substance: METOPROLOL
     Indication: Product used for unknown indication
     Dosage: 47.5 MILLIGRAM DAILY; 23.75 MG, 1-0-1-0
  5. CANDESARTAN [Concomitant]
     Active Substance: CANDESARTAN
     Indication: Product used for unknown indication
     Dosage: 16 MILLIGRAM DAILY; 8 MG, 1-0-1-0
  6. ASPIRIN [Concomitant]
     Active Substance: ASPIRIN
     Indication: Product used for unknown indication
     Dosage: 100 MILLIGRAM DAILY; 100 MG, 0-1-0-0
  7. SIMVASTATIN [Concomitant]
     Active Substance: SIMVASTATIN
     Indication: Product used for unknown indication
     Dosage: 1.5 DOSAGE FORMS DAILY; 20 MG, 0-0-1.5-0, UNIT DOSE : 1.5 DF, FREQUENCY : OD

REACTIONS (9)
  - Dyspnoea exertional [Unknown]
  - Haematochezia [Unknown]
  - Oedema peripheral [Unknown]
  - Anuria [Unknown]
  - Oedema peripheral [Unknown]
  - Anaemia [Unknown]
  - Product prescribing error [Unknown]
  - Product prescribing error [Unknown]
  - Product monitoring error [Unknown]
